FAERS Safety Report 23323219 (Version 1)
Quarter: 2023Q4

REPORT INFORMATION
  Report Type: Spontaneous
  Country: US (occurrence: None)
  Receive Date: 20231220
  Receipt Date: 20231220
  Transmission Date: 20240110
  Serious: No
  Sender: FDA-Public Use
  Company Number: US-ROCHE-3322101

PATIENT
  Sex: Female

DRUGS (1)
  1. RITUXAN [Suspect]
     Active Substance: RITUXIMAB
     Indication: Rheumatoid arthritis
     Dosage: WEEKS 0 AND 2 EVERY 6 MONTHS
     Route: 041
     Dates: start: 20230124

REACTIONS (2)
  - Dizziness [Unknown]
  - Constipation [Unknown]
